FAERS Safety Report 9312325 (Version 2)
Quarter: 2013Q2

REPORT INFORMATION
  Report Type: Spontaneous
  Country: JP (occurrence: JP)
  Receive Date: 20130528
  Receipt Date: 20130528
  Transmission Date: 20140414
  Serious: Yes (Hospitalization, Other)
  Sender: FDA-Public Use
  Company Number: JP-TEVA-405636ISR

PATIENT
  Age: 56 Year
  Sex: Male

DRUGS (4)
  1. GRANISETRON HCL,INJ,3MG 50ML 1BAG [Suspect]
     Indication: VOMITING
     Dosage: 3 MILLIGRAM DAILY;
     Route: 041
     Dates: start: 20130507
  2. FLUOROURACIL [Suspect]
     Dosage: 1100 MILLIGRAM DAILY;
     Route: 041
     Dates: start: 20130507, end: 20130510
  3. DEXART [Concomitant]
     Dosage: 3 ML DAILY;
     Route: 041
     Dates: start: 20130507, end: 20130510
  4. BRIPLATIN INJECTION [Concomitant]
     Indication: NEOPLASM MALIGNANT
     Dosage: 110 MILLIGRAM DAILY;
     Route: 041
     Dates: start: 20130507

REACTIONS (3)
  - Diarrhoea [Not Recovered/Not Resolved]
  - Toxic epidermal necrolysis [Recovering/Resolving]
  - Flushing [Unknown]
